FAERS Safety Report 4153337 (Version 3)
Quarter: 2013Q1

REPORT INFORMATION
  Report Type: Spontaneous
  Country: KR (occurrence: KR)
  Receive Date: 20040602
  Receipt Date: 20130320
  Transmission Date: 20140127
  Serious: Yes (Hospitalization)
  Sender: FDA-Public Use
  Company Number: KR-JNJFOC-20040506444

PATIENT
  Age: 26 Year
  Sex: Male

DRUGS (4)
  1. UNSPECIFIED IBUPROFEN PRODUCT [Suspect]
     Indication: RESPIRATORY DISORDER
  2. UNSPECIFIED IBUPROFEN PRODUCT [Suspect]
     Indication: MYALGIA
  3. UNSPECIFIED IBUPROFEN PRODUCT [Suspect]
     Indication: HEADACHE
  4. DOXYCYCLIN [Concomitant]
     Indication: UPPER RESPIRATORY TRACT INFECTION

REACTIONS (1)
  - Eosinophilic pneumonia [Recovered/Resolved]
